FAERS Safety Report 5195670-7 (Version None)
Quarter: 2006Q4

REPORT INFORMATION
  Report Type: 
  Country: None (occurrence: None)
  Receive Date: 20061222
  Receipt Date: 20061222
  Transmission Date: 20070319
  Serious: Yes (Life-Threatening, Hospitalization)
  Sender: FDA-Public Use
  Company Number: None

PATIENT
  Age: 33 Year
  Sex: Female
  Weight: 46.7 kg

DRUGS (15)
  1. EMTRICITABINE/TENOFOVIR DISOPROXIL FUMERATE [Suspect]
     Indication: HIV INFECTION
     Dosage: 200MG/300MG DAILY PO
     Route: 048
     Dates: start: 20061025, end: 20061123
  2. NEVIRAPINE [Suspect]
     Indication: HIV INFECTION
     Dosage: 200 MG BID PO
     Route: 048
     Dates: start: 20061025, end: 20061123
  3. BACTRIM [Concomitant]
  4. VITAMIN B COMPLEX CAP [Concomitant]
  5. MULTI-VITAMIN [Concomitant]
  6. AQUEOUS CREAM [Concomitant]
  7. NURISTERATE CONTRACEPTION [Concomitant]
  8. CANDICIDE [Concomitant]
  9. FUNGIZONE [Concomitant]
  10. CLOTRIMAZOLE PV [Concomitant]
  11. PYRIDOZINE [Concomitant]
  12. AMITRIPTYLINE HCL [Concomitant]
  13. IBUPROFEN [Concomitant]
  14. PANADO [Concomitant]
  15. METHYLSALICYLATE OINTMENT [Concomitant]

REACTIONS (4)
  - ANION GAP INCREASED [None]
  - HAEMODIALYSIS [None]
  - INCORRECT DOSE ADMINISTERED [None]
  - RENAL FAILURE ACUTE [None]
